FAERS Safety Report 17274194 (Version 2)
Quarter: 2020Q1

REPORT INFORMATION
  Report Type: Spontaneous
  Country: US (occurrence: US)
  Receive Date: 20200115
  Receipt Date: 20200117
  Transmission Date: 20200409
  Serious: Yes (Other)
  Sender: FDA-Public Use
  Company Number: US-PFIZER INC-2018040574

PATIENT
  Sex: Female

DRUGS (2)
  1. PHOSPHOLINE IODIDE [Suspect]
     Active Substance: ECHOTHIOPHATE IODIDE
     Indication: VISUAL IMPAIRMENT
     Dosage: 1 DF [0.125%, 1/8%, 6.25MG/5ML], UNK
  2. PHOSPHOLINE IODIDE [Suspect]
     Active Substance: ECHOTHIOPHATE IODIDE
     Indication: GLAUCOMA

REACTIONS (3)
  - Product dispensing error [Unknown]
  - Product physical issue [Unknown]
  - Visual impairment [Unknown]
